FAERS Safety Report 16035412 (Version 1)
Quarter: 2019Q1

REPORT INFORMATION
  Report Type: Spontaneous
  Country: US (occurrence: US)
  Receive Date: 20190305
  Receipt Date: 20190305
  Transmission Date: 20190418
  Serious: No
  Sender: FDA-Public Use
  Company Number: US-SA-2019SA061078

PATIENT
  Sex: Female

DRUGS (1)
  1. DUPIXENT [Suspect]
     Active Substance: DUPILUMAB
     Dosage: UNK
     Dates: start: 20011227

REACTIONS (6)
  - Eye pain [Unknown]
  - Conjunctivitis [Unknown]
  - Oral herpes [Unknown]
  - Herpes zoster [Unknown]
  - Hypoaesthesia [Unknown]
  - Paraesthesia [Unknown]
